FAERS Safety Report 14493216 (Version 2)
Quarter: 2018Q2

REPORT INFORMATION
  Report Type: Spontaneous
  Country: US (occurrence: US)
  Receive Date: 20180206
  Receipt Date: 20180531
  Transmission Date: 20180711
  Serious: Yes (Hospitalization, Other)
  Sender: FDA-Public Use
  Company Number: US-ASTRAZENECA-2018SE13090

PATIENT
  Age: 67 Year
  Sex: Female
  Weight: 108.9 kg

DRUGS (19)
  1. PREDNISONE. [Suspect]
     Active Substance: PREDNISONE
     Dosage: 5.0MG UNKNOWN
     Route: 065
  2. METFORMIN [Concomitant]
     Active Substance: METFORMIN HYDROCHLORIDE
  3. LOSARTAN. [Concomitant]
     Active Substance: LOSARTAN
  4. SYMBICORT [Suspect]
     Active Substance: BUDESONIDE\FORMOTEROL FUMARATE DIHYDRATE
     Indication: ASTHMA
     Dosage: 160-4.5MCG, 2 PUFFS BID
     Route: 055
  5. LEVOTHYROXINE. [Concomitant]
     Active Substance: LEVOTHYROXINE
     Indication: THYROID DISORDER
     Route: 048
  6. HUMALOG [Concomitant]
     Active Substance: INSULIN LISPRO
  7. CELLCEPT [Concomitant]
     Active Substance: MYCOPHENOLATE MOFETIL\MYCOPHENOLATE MOFETIL HYDROCHLORIDE
  8. MEPRON [Concomitant]
     Active Substance: ATOVAQUONE
  9. AZITHROMYCIN ANHYDROUS. [Concomitant]
     Active Substance: AZITHROMYCIN ANHYDROUS
  10. SINGULAIR [Concomitant]
     Active Substance: MONTELUKAST SODIUM
  11. SYMBICORT [Suspect]
     Active Substance: BUDESONIDE\FORMOTEROL FUMARATE DIHYDRATE
     Indication: CHRONIC OBSTRUCTIVE PULMONARY DISEASE
     Dosage: 160-4.5MCG, 2 PUFFS BID
     Route: 055
  12. PREDNISONE. [Suspect]
     Active Substance: PREDNISONE
     Dosage: 1.0MG UNKNOWN
     Route: 065
  13. PREDNISONE. [Suspect]
     Active Substance: PREDNISONE
     Dosage: 20.0MG UNKNOWN
     Route: 065
  14. QVAR [Concomitant]
     Active Substance: BECLOMETHASONE DIPROPIONATE
     Dosage: 80MCG, 2 PUFFS BID
  15. TUDORZA PRESSAIR [Suspect]
     Active Substance: ACLIDINIUM BROMIDE
     Indication: CHRONIC OBSTRUCTIVE PULMONARY DISEASE
     Route: 055
  16. PREDNISONE. [Suspect]
     Active Substance: PREDNISONE
     Dosage: 40.0MG UNKNOWN
     Route: 065
     Dates: start: 201503
  17. HUMULIN NOS [Concomitant]
     Active Substance: INSULIN HUMAN
  18. PREDNISONE. [Suspect]
     Active Substance: PREDNISONE
     Dosage: STRESS DOSE UNKNOWN
     Route: 065
  19. PREDNISONE. [Suspect]
     Active Substance: PREDNISONE
     Dosage: 40.0MG UNKNOWN
     Route: 065

REACTIONS (19)
  - Pancreatitis [Recovering/Resolving]
  - Adverse event [Not Recovered/Not Resolved]
  - Visual acuity reduced [Unknown]
  - Product quality issue [Unknown]
  - Blood glucose decreased [Not Recovered/Not Resolved]
  - Cataract [Unknown]
  - Drug dose omission [Unknown]
  - Immunosuppression [Recovering/Resolving]
  - Septic shock [Recovering/Resolving]
  - Muscular weakness [Not Recovered/Not Resolved]
  - Lung disorder [Unknown]
  - Hiatus hernia [Recovering/Resolving]
  - Muscle disorder [Unknown]
  - Blood cholesterol abnormal [Unknown]
  - Osteonecrosis [Not Recovered/Not Resolved]
  - Blood pressure abnormal [Unknown]
  - Type 2 diabetes mellitus [Unknown]
  - Pulmonary granuloma [Not Recovered/Not Resolved]
  - Cough [Not Recovered/Not Resolved]

NARRATIVE: CASE EVENT DATE: 2016
